FAERS Safety Report 17686047 (Version 6)
Quarter: 2020Q4

REPORT INFORMATION
  Report Type: Report from Study
  Country: FR (occurrence: FR)
  Receive Date: 20200420
  Receipt Date: 20201002
  Transmission Date: 20210113
  Serious: Yes (Hospitalization, Other)
  Sender: FDA-Public Use
  Company Number: FR-BAYER-2020-029051

PATIENT
  Age: 72 Year
  Sex: Female
  Weight: 55 kg

DRUGS (24)
  1. BAVENCIO [Suspect]
     Active Substance: AVELUMAB
     Indication: CHOLANGIOCARCINOMA
     Dosage: 620 MG
     Route: 042
     Dates: end: 20200402
  2. REGORAFENIB. [Suspect]
     Active Substance: REGORAFENIB
     Indication: CHOLANGIOCARCINOMA
     Dosage: 120 MG
     Route: 048
     Dates: end: 20200711
  3. BAVENCIO [Suspect]
     Active Substance: AVELUMAB
     Indication: METASTASIS
     Dosage: 620 MG
     Route: 042
     Dates: end: 20200206
  4. PRAMIPEXOLE. [Concomitant]
     Active Substance: PRAMIPEXOLE
     Dosage: 0.26 MG + 0.18 MG 0-0-1
  5. EUPANTOL [Concomitant]
     Active Substance: PANTOPRAZOLE SODIUM
     Dosage: 1 TABLET QD
  6. SIFROL [Concomitant]
     Active Substance: PRAMIPEXOLE
     Route: 048
  7. REGORAFENIB. [Suspect]
     Active Substance: REGORAFENIB
     Indication: METASTASIS
     Dosage: 160 MG, QD
     Route: 048
     Dates: end: 20200213
  8. REGORAFENIB. [Suspect]
     Active Substance: REGORAFENIB
     Indication: CHOLANGIOCARCINOMA
     Dosage: 120 MG
     Route: 048
     Dates: end: 20200609
  9. BAVENCIO [Suspect]
     Active Substance: AVELUMAB
     Indication: CHOLANGIOCARCINOMA
     Dosage: 620 MG
     Route: 042
     Dates: start: 20191029, end: 20191029
  10. PRAMIPEXOLE. [Concomitant]
     Active Substance: PRAMIPEXOLE
     Dosage: 0.18 MG 0-0-1UNK
  11. SPASFON [PHLOROGLUCINOL] [Concomitant]
     Active Substance: PHLOROGLUCINOL
     Dosage: UNK
     Route: 048
  12. MOVICOL [MACROGOL 3350;POTASSIUM CHLORIDE;SODIUM BICARBONATE;SODIU [Concomitant]
     Dosage: 2 SACHETS QD
  13. REGORAFENIB. [Suspect]
     Active Substance: REGORAFENIB
     Indication: CHOLANGIOCARCINOMA
     Dosage: 160 MG
     Route: 048
     Dates: start: 20191015, end: 20191030
  14. LEXOMIL [Concomitant]
     Active Substance: BROMAZEPAM
     Indication: ANXIETY
     Dosage: 3 MG, HS
     Route: 048
  15. LOSARTAN W/HIDROCLOROTIAZIDA [Concomitant]
     Active Substance: HYDROCHLOROTHIAZIDE\LOSARTAN
     Dosage: 25 MG + 100 MG 1-0-0
  16. METFORMINE [METFORMIN] [Concomitant]
     Active Substance: METFORMIN HYDROCHLORIDE
     Dosage: 500 MG 1-0-1 AT MEALS
     Route: 048
  17. DIFFU K [Concomitant]
     Active Substance: POTASSIUM CHLORIDE
     Dosage: 1 CAPSULE QD
  18. BAVENCIO [Suspect]
     Active Substance: AVELUMAB
     Indication: CHOLANGIOCARCINOMA
     Dosage: 620 MG
     Route: 042
     Dates: end: 20200729
  19. REGORAFENIB. [Suspect]
     Active Substance: REGORAFENIB
     Indication: CHOLANGIOCARCINOMA
     Dosage: 120 MG
     Route: 048
     Dates: end: 20200327
  20. BAVENCIO [Suspect]
     Active Substance: AVELUMAB
     Indication: CHOLANGIOCARCINOMA
     Dosage: 620 MG
     Route: 042
     Dates: end: 20200527
  21. BROMAZEPAM [Concomitant]
     Active Substance: BROMAZEPAM
     Route: 048
  22. DEXPRAMIPEXOLE DIHYDROCHLORIDE MONOHYDRATE [Concomitant]
  23. IMODIUM [Concomitant]
     Active Substance: LOPERAMIDE HYDROCHLORIDE
     Indication: PROPHYLAXIS
     Dosage: UNK
  24. FORTZAAR [Concomitant]
     Active Substance: HYDROCHLOROTHIAZIDE\LOSARTAN POTASSIUM
     Route: 048

REACTIONS (8)
  - Urosepsis [Not Recovered/Not Resolved]
  - Escherichia urinary tract infection [Recovered/Resolved]
  - Cholangitis [Recovered/Resolved]
  - Rash maculo-papular [Recovered/Resolved]
  - Pancreatitis [Not Recovered/Not Resolved]
  - Splenic infarction [None]
  - Sepsis [Not Recovered/Not Resolved]
  - Pyrexia [Recovered/Resolved]

NARRATIVE: CASE EVENT DATE: 20191031
